FAERS Safety Report 6063058-2 (Version None)
Quarter: 2009Q1

REPORT INFORMATION
  Report Type: 
  Country: None (occurrence: None)
  Receive Date: 20090203
  Receipt Date: 20090126
  Transmission Date: 20090719
  Serious: Yes (Other)
  Sender: FDA-Public Use
  Company Number: PHHY2009US02865

PATIENT
  Sex: Female

DRUGS (2)
  1. EXJADE [Suspect]
     Indication: POLYCYTHAEMIA VERA
     Dosage: 1000 MG DAILY
     Route: 048
     Dates: start: 20090105, end: 20090119
  2. EXJADE [Suspect]
     Indication: IRON OVERLOAD

REACTIONS (2)
  - FATIGUE [None]
  - HALLUCINATION [None]
